FAERS Safety Report 18695855 (Version 2)
Quarter: 2021Q1

REPORT INFORMATION
  Report Type: Spontaneous
  Country: US (occurrence: US)
  Receive Date: 20210104
  Receipt Date: 20210111
  Transmission Date: 20210419
  Serious: Yes (Death, Other)
  Sender: FDA-Public Use
  Company Number: US-PFIZER INC-2020519715

PATIENT
  Age: 52 Year
  Sex: Male

DRUGS (3)
  1. AMINOPHYLLINE. [Suspect]
     Active Substance: AMINOPHYLLINE
     Indication: SHOCK
  2. AMINOPHYLLINE. [Suspect]
     Active Substance: AMINOPHYLLINE
     Indication: PULMONARY OEDEMA
  3. AMINOPHYLLINE. [Suspect]
     Active Substance: AMINOPHYLLINE
     Indication: ACUTE CORONARY SYNDROME
     Dosage: 0.25 MG, (10 CC VIAL, ABOUT 4 CC INJECTED)
     Route: 042
     Dates: start: 1943

REACTIONS (1)
  - Sudden cardiac death [Fatal]

NARRATIVE: CASE EVENT DATE: 1943
